FAERS Safety Report 7565036-0 (Version None)
Quarter: 2011Q2

REPORT INFORMATION
  Report Type: 
  Country: None (occurrence: None)
  Receive Date: 20110622
  Receipt Date: 20110407
  Transmission Date: 20111010
  Serious: Yes (Death)
  Sender: FDA-Public Use
  Company Number: US-MYLANLABS-2011S1007524

PATIENT
  Age: 40 Year
  Sex: Male

DRUGS (3)
  1. RISPERDAL [Concomitant]
  2. CLOZAPINE [Suspect]
     Dates: end: 20110222
  3. SEROQUEL [Concomitant]

REACTIONS (2)
  - HOMICIDE [None]
  - COMPLETED SUICIDE [None]
